FAERS Safety Report 4548717-2 (Version None)
Quarter: 2005Q1

REPORT INFORMATION
  Report Type: 
  Country: None (occurrence: None)
  Receive Date: 20050106
  Receipt Date: 20050106
  Transmission Date: 20050727
  Serious: Yes (Hospitalization)
  Sender: FDA-Public Use
  Company Number: None

PATIENT
  Age: 53 Year
  Sex: Male

DRUGS (5)
  1. BEVACIZUMAB [Suspect]
     Indication: HEPATIC NEOPLASM MALIGNANT
     Dosage: 823 MG, Q2W, IV
     Route: 042
     Dates: start: 20040205, end: 20041209
  2. LEVAQUIN [Concomitant]
  3. OCTREOTIDE [Concomitant]
  4. PROTONIX [Concomitant]
  5. MORPHINE [Concomitant]

REACTIONS (4)
  - PORTAL HYPERTENSIVE GASTROPATHY [None]
  - PYREXIA [None]
  - UPPER GASTROINTESTINAL HAEMORRHAGE [None]
  - VARICES OESOPHAGEAL [None]
